FAERS Safety Report 8787836 (Version 1)
Quarter: 2012Q4

REPORT INFORMATION
  Report Type: 
  Country: US (occurrence: US)
  Receive Date: 20120914
  Receipt Date: 20120914
  Transmission Date: 20130627
  Serious: Yes (Hospitalization)
  Sender: FDA-Public Use
  Company Number: US-VERTEX PHARMACEUTICAL INC.-AE-2011-001369

PATIENT
  Age: 55 Year
  Sex: Male

DRUGS (4)
  1. INCIVEK [Suspect]
     Indication: HEPATITIS C
     Route: 048
     Dates: start: 20110902
  2. RIBAVIRIN [Concomitant]
     Indication: HEPATITIS C
     Route: 048
     Dates: start: 20110902
  3. INTERFERON [Concomitant]
     Indication: HEPATITIS C
     Route: 058
     Dates: start: 20110902
  4. ROBAXIN [Concomitant]
     Route: 048

REACTIONS (5)
  - Anaemia [Recovered/Resolved]
  - Medication error [Recovered/Resolved]
  - Rash [Not Recovered/Not Resolved]
  - Anorectal discomfort [Recovered/Resolved]
  - Anal pruritus [Recovered/Resolved]
